FAERS Safety Report 20523920 (Version 2)
Quarter: 2022Q1

REPORT INFORMATION
  Report Type: Spontaneous
  Country: US (occurrence: US)
  Receive Date: 20220228
  Receipt Date: 20220324
  Transmission Date: 20220423
  Serious: No
  Sender: FDA-Public Use
  Company Number: US-GLAXOSMITHKLINE-US2022AMR033796

PATIENT
  Sex: Female

DRUGS (2)
  1. BENLYSTA [Suspect]
     Active Substance: BELIMUMAB
     Indication: Systemic lupus erythematosus
     Dosage: 10 MG/KG, Z EVERY 4 WEEKS (120MG VIAL + 400MG VIAL)1-2 YEARS
     Route: 042
  2. TYLENOL [Concomitant]
     Active Substance: ACETAMINOPHEN
     Indication: Product used for unknown indication
     Dosage: UNK

REACTIONS (6)
  - Lip swelling [Recovered/Resolved]
  - Urticaria [Recovered/Resolved]
  - Adverse drug reaction [Unknown]
  - Headache [Unknown]
  - Malaise [Unknown]
  - Drug ineffective [Unknown]
